FAERS Safety Report 4346035-9 (Version None)
Quarter: 2004Q2

REPORT INFORMATION
  Report Type: 
  Country: None (occurrence: None)
  Receive Date: 20040420
  Receipt Date: 20040407
  Transmission Date: 20050107
  Serious: Yes (Hospitalization)
  Sender: FDA-Public Use
  Company Number: A02200401238

PATIENT
  Age: 70 Year
  Sex: Male

DRUGS (6)
  1. XATRAL- (ALFUZOSIN) - TABLET PR- 2.5 MG [Suspect]
     Indication: BENIGN PROSTATIC HYPERPLASIA
     Dosage: 12.5 MG OD, ORAL
     Route: 048
     Dates: end: 20040314
  2. RISPERDAL [Suspect]
     Indication: DELIRIUM
     Dosage: ORAL
     Route: 048
     Dates: start: 20040225, end: 20040317
  3. PARKINANE - (TRIHEXYPHENIDYL HYDROCHLORIDE) - TABLET PR - 5 MG [Suspect]
     Dosage: 5 MG OD, ORAL
     Route: 048
     Dates: end: 20040317
  4. LEXOMIL (BROMAZEPAM) [Concomitant]
  5. STILNOX (ZOLPIDEM) [Concomitant]
  6. DEROXAT (PAROXETINE HDYROCHLORIDE) [Concomitant]

REACTIONS (11)
  - CHILLS [None]
  - DIZZINESS [None]
  - FALL [None]
  - HYPERHIDROSIS [None]
  - HYPOTENSION [None]
  - LOSS OF CONSCIOUSNESS [None]
  - MALAISE [None]
  - PALLOR [None]
  - RHABDOMYOLYSIS [None]
  - VERTIGO [None]
  - VISION BLURRED [None]
